FAERS Safety Report 5425510-X (Version None)
Quarter: 2007Q3

REPORT INFORMATION
  Report Type: 
  Country: None (occurrence: None)
  Receive Date: 20070824
  Receipt Date: 20070814
  Transmission Date: 20080115
  Serious: Yes (Other)
  Sender: FDA-Public Use
  Company Number: US-GENENTECH-246172

PATIENT
  Age: 53 Year
  Sex: Male
  Weight: 104 kg

DRUGS (2)
  1. BEVACIZUMAB [Suspect]
     Indication: FOLLICULAR THYROID CANCER
     Dosage: 10 MG/KG, D1,15,29
     Route: 042
     Dates: start: 20070419, end: 20070614
  2. SUNITINIB MALATE [Suspect]
     Indication: FOLLICULAR THYROID CANCER
     Dosage: 50 MG, QD
     Route: 048
     Dates: start: 20070419, end: 20070627

REACTIONS (2)
  - HYPERBILIRUBINAEMIA [None]
  - HYPONATRAEMIA [None]
